FAERS Safety Report 17430795 (Version 1)
Quarter: 2020Q1

REPORT INFORMATION
  Report Type: Spontaneous
  Country: US (occurrence: US)
  Receive Date: 20200217
  Receipt Date: 20200217
  Transmission Date: 20200409
  Serious: Yes (Hospitalization)
  Sender: FDA-Public Use
  Company Number: None

PATIENT
  Age: 85 Year
  Sex: Female
  Weight: 94.8 kg

DRUGS (4)
  1. MORPHINE [Concomitant]
     Active Substance: MORPHINE
     Dates: start: 20200119, end: 20200119
  2. TRAMADOL. [Suspect]
     Active Substance: TRAMADOL
     Indication: MUSCLE SPASMS
     Route: 048
     Dates: start: 20200119, end: 20200124
  3. KETOROLAC [Concomitant]
     Active Substance: KETOROLAC TROMETHAMINE
     Dates: start: 20200119, end: 20200119
  4. CYCLOBENZAPRINE. [Suspect]
     Active Substance: CYCLOBENZAPRINE
     Indication: MUSCLE SPASMS
     Route: 048
     Dates: start: 20200119, end: 20200124

REACTIONS (5)
  - Confusional state [None]
  - Neck pain [None]
  - Drug intolerance [None]
  - Hallucination [None]
  - Drug interaction [None]

NARRATIVE: CASE EVENT DATE: 20200124
